FAERS Safety Report 18659407 (Version 1)
Quarter: 2020Q4

REPORT INFORMATION
  Report Type: Spontaneous
  Country: AU (occurrence: AU)
  Receive Date: 20201223
  Receipt Date: 20201223
  Transmission Date: 20210114
  Serious: Yes (Other)
  Sender: FDA-Public Use
  Company Number: AU-ANIPHARMA-2020-AU-000300

PATIENT
  Age: 64 Year
  Sex: Female

DRUGS (5)
  1. TAMOXIFEN [Suspect]
     Active Substance: TAMOXIFEN
     Route: 048
  2. ANASTROZOLE. [Suspect]
     Active Substance: ANASTROZOLE
     Indication: PRODUCT USED FOR UNKNOWN INDICATION
     Route: 048
  3. AFINITOR [Suspect]
     Active Substance: EVEROLIMUS
     Route: 065
  4. ABRAXANE [Suspect]
     Active Substance: PACLITAXEL
     Route: 065
  5. EXEMESTANE. [Suspect]
     Active Substance: EXEMESTANE
     Route: 065

REACTIONS (6)
  - Peritoneal disorder [Unknown]
  - Metastases to bone [Unknown]
  - Ascites [Unknown]
  - Malignant neoplasm progression [Unknown]
  - Breast cancer metastatic [Unknown]
  - Therapy non-responder [Unknown]
